FAERS Safety Report 6569262-9 (Version None)
Quarter: 2010Q1

REPORT INFORMATION
  Report Type: 
  Country: None (occurrence: None)
  Receive Date: 20100201
  Receipt Date: 20100201
  Transmission Date: 20100710
  Serious: Yes (Other)
  Sender: FDA-Public Use
  Company Number: None

PATIENT
  Age: 36 Year
  Sex: Female

DRUGS (2)
  1. TRINESSA [Suspect]
     Indication: CONTRACEPTION
     Dosage: DAILY PO
     Route: 048
  2. MONONESSA [Concomitant]
     Indication: CONTRACEPTION
     Dosage: DAILY PO
     Route: 048

REACTIONS (2)
  - METRORRHAGIA [None]
  - PRODUCT SUBSTITUTION ISSUE [None]
